FAERS Safety Report 24252351 (Version 2)
Quarter: 2024Q3

REPORT INFORMATION
  Report Type: Spontaneous
  Country: TR (occurrence: TR)
  Receive Date: 20240827
  Receipt Date: 20240912
  Transmission Date: 20241017
  Serious: Yes (Disabling, Other)
  Sender: CELLTRION
  Company Number: TR-CELLTRION INC.-2024TR020248

PATIENT

DRUGS (5)
  1. TRASTUZUMAB [Suspect]
     Active Substance: TRASTUZUMAB
     Indication: HER2 positive breast cancer
     Dosage: 4 CYCLES
  2. TRASTUZUMAB [Suspect]
     Active Substance: TRASTUZUMAB
     Dosage: 6TH DOSE
     Dates: start: 20220210
  3. DOCETAXEL [Suspect]
     Active Substance: DOCETAXEL\DOCETAXEL ANHYDROUS
     Indication: HER2 positive breast cancer
     Dosage: FOUR CYCLES
  4. PERTUZUMAB [Suspect]
     Active Substance: PERTUZUMAB
     Indication: HER2 positive breast cancer
     Dosage: FOUR CYCLES
  5. TAMOXIFEN [Suspect]
     Active Substance: TAMOXIFEN
     Indication: HER2 positive breast cancer
     Dosage: STARTED 1.5 MONTHS AGO

REACTIONS (1)
  - Optic neuritis [Unknown]
